FAERS Safety Report 4301898-8 (Version None)
Quarter: 2004Q1

REPORT INFORMATION
  Report Type: 
  Country: None (occurrence: None)
  Receive Date: 20040223
  Receipt Date: 20040213
  Transmission Date: 20041129
  Serious: Yes (Death, Other)
  Sender: FDA-Public Use
  Company Number: WAES 0402USA01223

PATIENT
  Age: 78 Year
  Sex: Male

DRUGS (6)
  1. [THERAPY UNSPECIFIED] [Concomitant]
     Route: 042
  2. AMINO ACIDS (UNSPECIFIED) [Concomitant]
     Indication: RENAL FAILURE
  3. PRIMAXIN [Suspect]
     Route: 042
     Dates: start: 20040128, end: 20040202
  4. CLINDAMYCIN HYDROCHLORIDE [Concomitant]
  5. INSULIN HUMAN [Concomitant]
  6. INSULIN LISPRO [Concomitant]

REACTIONS (2)
  - CONVULSION [None]
  - RENAL FAILURE [None]
